FAERS Safety Report 20150780 (Version 2)
Quarter: 2021Q4

REPORT INFORMATION
  Report Type: Report from Study
  Country: US (occurrence: US)
  Receive Date: 20211206
  Receipt Date: 20211210
  Transmission Date: 20220303
  Serious: Yes (Hospitalization)
  Sender: FDA-Public Use
  Company Number: US-EUSA PHARMA (UK) LIMITED-2021US000660

PATIENT

DRUGS (4)
  1. SYLVANT [Suspect]
     Active Substance: SILTUXIMAB
     Indication: Pancreatic carcinoma metastatic
     Dosage: CYCLE 1: 11 MG/KG, EVERY 3 WEEKS
     Route: 042
     Dates: start: 20211027, end: 2021
  2. SYLVANT [Suspect]
     Active Substance: SILTUXIMAB
     Dosage: CYCLE 2: 11 MG/KG, EVERY 3 WEEKS
     Route: 042
     Dates: start: 2021, end: 20211201
  3. SPARTALIZUMAB [Suspect]
     Active Substance: SPARTALIZUMAB
     Indication: Pancreatic carcinoma metastatic
     Dosage: CYCLE 1: 300 MG, EVERY 3 WEEKS
     Route: 042
     Dates: start: 20211027, end: 2021
  4. SPARTALIZUMAB [Suspect]
     Active Substance: SPARTALIZUMAB
     Dosage: CYCLE 2: 300 MG, EVERY 3 WEEKS
     Route: 042
     Dates: start: 2021, end: 20211201

REACTIONS (7)
  - Failure to thrive [Unknown]
  - Vomiting [Unknown]
  - Abdominal pain [Unknown]
  - Hypophagia [Unknown]
  - Hyponatraemia [Unknown]
  - Liver disorder [Unknown]
  - Nausea [Unknown]

NARRATIVE: CASE EVENT DATE: 20211124
